FAERS Safety Report 4963775-9 (Version None)
Quarter: 2006Q1

REPORT INFORMATION
  Report Type: 
  Country: None (occurrence: None)
  Receive Date: 20060330
  Receipt Date: 20060314
  Transmission Date: 20060701
  Serious: Yes (Hospitalization)
  Sender: FDA-Public Use
  Company Number: DSA_27800_2006

PATIENT
  Age: 50 Year
  Sex: Female

DRUGS (2)
  1. TAVOR            /00273201/ [Suspect]
     Dosage: 5 MG ONCE PO
     Route: 048
     Dates: start: 20060215, end: 20060215
  2. SOLIAN [Suspect]
     Dosage: 750 MG ONCE PO
     Route: 048
     Dates: start: 20060215, end: 20060215

REACTIONS (6)
  - DEPRESSED LEVEL OF CONSCIOUSNESS [None]
  - DYSARTHRIA [None]
  - FATIGUE [None]
  - MULTIPLE DRUG OVERDOSE [None]
  - SUICIDE ATTEMPT [None]
  - TACHYCARDIA [None]
